FAERS Safety Report 23103302 (Version 1)
Quarter: 2023Q4

REPORT INFORMATION
  Report Type: Spontaneous
  Country: US (occurrence: None)
  Receive Date: 20231022
  Receipt Date: 20231022
  Transmission Date: 20240110
  Serious: Yes (Death, Hospitalization)
  Sender: FDA-Public Use
  Company Number: None

PATIENT
  Age: 67 Year
  Sex: Male

DRUGS (1)
  1. REMIMAZOLAM [Suspect]
     Active Substance: REMIMAZOLAM
     Dosage: FREQUENCY : ONCE;?
     Route: 042
     Dates: start: 20230331, end: 20230331

REACTIONS (4)
  - Cardio-respiratory arrest [None]
  - Bronchospasm [None]
  - Anaphylactic reaction [None]
  - Mechanical ventilation complication [None]

NARRATIVE: CASE EVENT DATE: 20230331
